FAERS Safety Report 20111942 (Version 1)
Quarter: 2021Q4

REPORT INFORMATION
  Report Type: Spontaneous
  Country: US (occurrence: US)
  Receive Date: 20211125
  Receipt Date: 20211125
  Transmission Date: 20220303
  Serious: No
  Sender: FDA-Public Use
  Company Number: US-AUROBINDO-AUR-APL-2021-002378

PATIENT
  Sex: Female
  Weight: 61.23 kg

DRUGS (1)
  1. FLUCONAZOLE [Suspect]
     Active Substance: FLUCONAZOLE
     Indication: Candida infection
     Dosage: 2 DOSAGE FORM, DAILY AT 5 PM
     Route: 048
     Dates: start: 20201216

REACTIONS (4)
  - Headache [Not Recovered/Not Resolved]
  - Dysgeusia [Unknown]
  - Product taste abnormal [Unknown]
  - Product solubility abnormal [Unknown]

NARRATIVE: CASE EVENT DATE: 20201216
